FAERS Safety Report 11246035 (Version 2)
Quarter: 2015Q3

REPORT INFORMATION
  Report Type: Spontaneous
  Country: AR (occurrence: AR)
  Receive Date: 20150708
  Receipt Date: 20150713
  Transmission Date: 20151125
  Serious: Yes (Other)
  Sender: FDA-Public Use
  Company Number: AR-AMGEN-ARGSP2015066494

PATIENT
  Age: 79 Year
  Sex: Female

DRUGS (2)
  1. ENBREL [Suspect]
     Active Substance: ETANERCEPT
     Dosage: UNK
     Route: 065
  2. ENBREL [Suspect]
     Active Substance: ETANERCEPT
     Indication: PSORIATIC ARTHROPATHY
     Dosage: 50 MG, WEEKLY
     Route: 065
     Dates: start: 20130925

REACTIONS (3)
  - Headache [Not Recovered/Not Resolved]
  - Cataract [Not Recovered/Not Resolved]
  - Renal disorder [Not Recovered/Not Resolved]

NARRATIVE: CASE EVENT DATE: 20150619
